FAERS Safety Report 9041306 (Version 1)
Quarter: 2013Q1

REPORT INFORMATION
  Report Type: Spontaneous
  Country: US (occurrence: None)
  Receive Date: 20130114
  Receipt Date: 20130114
  Transmission Date: 20140127
  Serious: Yes (Death, Other)
  Sender: FDA-Public Use
  Company Number: TPA2012A09387

PATIENT
  Age: 61 Year
  Sex: Male
  Weight: 113.4 kg

DRUGS (9)
  1. ACTOS (PIOGLITAZONE HYDROCHLORIDE) [Suspect]
     Indication: TYPE 2 DIABETES MELLITUS
     Dates: start: 20030826, end: 20030925
  2. METFORMIN (METFORMIN) [Concomitant]
  3. HUMALOG (INSULIN LISPRO) [Concomitant]
  4. DIABETA (GLIBENCLAMIDE) [Concomitant]
  5. LANTUS (INSULIN GLARGINE) [Concomitant]
  6. LEVEMIR (INSULIN DETEMIR) [Concomitant]
  7. GLYBURIDE/METFORMIN (METFORMIN HYDROCHLORIDE, GLIBENCLAMIDE) [Concomitant]
  8. INSULIN (INSULIN) [Concomitant]
  9. NOVOLIN R (INSULIN HUMAN) [Concomitant]

REACTIONS (3)
  - Bladder cancer [None]
  - Ureteric cancer [None]
  - Hydronephrosis [None]
